FAERS Safety Report 24428943 (Version 2)
Quarter: 2024Q4

REPORT INFORMATION
  Report Type: Spontaneous
  Country: JP (occurrence: JP)
  Receive Date: 20241011
  Receipt Date: 20241028
  Transmission Date: 20250115
  Serious: Yes (Other)
  Sender: OTSUKA
  Company Number: JP-OTSUKA-2024_027726AA

PATIENT
  Age: 2 Year
  Sex: Male

DRUGS (4)
  1. BUSULFEX [Suspect]
     Active Substance: BUSULFAN
     Indication: Transplant
     Dosage: UNK
     Route: 065
  2. BUSULFEX [Suspect]
     Active Substance: BUSULFAN
     Indication: Premedication
  3. MELPHALAN [Suspect]
     Active Substance: MELPHALAN
     Indication: Transplant
     Dosage: UNK
     Route: 065
  4. MELPHALAN [Suspect]
     Active Substance: MELPHALAN
     Indication: Premedication

REACTIONS (3)
  - Pulmonary hypertension [Recovered/Resolved]
  - Haptoglobin decreased [Recovered/Resolved]
  - Platelet count decreased [Recovered/Resolved]
